FAERS Safety Report 25869449 (Version 3)
Quarter: 2025Q4

REPORT INFORMATION
  Report Type: Spontaneous
  Country: US (occurrence: US)
  Receive Date: 20251001
  Receipt Date: 20251124
  Transmission Date: 20260118
  Serious: Yes (Hospitalization, Other)
  Sender: MEITHEAL PHARMACEUTICALS
  Company Number: US-MEITHEAL-2025MPSPO00344

PATIENT
  Age: 64 Year
  Sex: Female
  Weight: 59 kg

DRUGS (12)
  1. CARBOPLATIN [Suspect]
     Active Substance: CARBOPLATIN
     Indication: Non-small cell lung cancer
     Dosage: CYCLICALLY
     Route: 042
     Dates: start: 20250212, end: 20250422
  2. PEMETREXED [Suspect]
     Active Substance: PEMETREXED
     Indication: Non-small cell lung cancer
     Route: 042
     Dates: start: 20250212, end: 20250422
  3. PEMETREXED [Suspect]
     Active Substance: PEMETREXED
     Route: 042
  4. PEMETREXED [Suspect]
     Active Substance: PEMETREXED
     Route: 042
     Dates: start: 20250611
  5. PEMBROLIZUMAB [Suspect]
     Active Substance: PEMBROLIZUMAB
     Indication: Non-small cell lung cancer
     Dosage: CYCLICALLY
     Route: 042
     Dates: start: 20250212, end: 20250422
  6. PEMBROLIZUMAB [Suspect]
     Active Substance: PEMBROLIZUMAB
     Dosage: CYCLICALLY
     Route: 042
     Dates: start: 20250611
  7. INVESTIGATIONAL PRODUCT [Suspect]
     Active Substance: INVESTIGATIONAL PRODUCT
     Indication: Non-small cell lung cancer
     Route: 042
     Dates: start: 20250212, end: 20250422
  8. INVESTIGATIONAL PRODUCT [Suspect]
     Active Substance: INVESTIGATIONAL PRODUCT
     Indication: Non-small cell lung cancer
     Route: 042
     Dates: start: 20250212, end: 20250422
  9. OLOMORASIB [Suspect]
     Active Substance: OLOMORASIB
     Indication: Non-small cell lung cancer
     Route: 042
     Dates: start: 20250212, end: 20250422
  10. Magnesium hydmxide [Concomitant]
     Indication: Constipation
     Route: 065
  11. LEVOTHYROXINE SODIUM [Concomitant]
     Active Substance: LEVOTHYROXINE SODIUM
     Indication: Hypothyroidism
     Route: 065
  12. ACETAMINOPHEN\HYDROCODONE [Concomitant]
     Active Substance: ACETAMINOPHEN\HYDROCODONE
     Indication: Cachexia
     Route: 065
     Dates: start: 20250303, end: 20250626

REACTIONS (5)
  - Hypokalaemia [Recovered/Resolved]
  - Leukopenia [Recovered/Resolved]
  - Normocytic anaemia [Recovered/Resolved]
  - Neutropenia [Recovered/Resolved]
  - Anaemia [Recovered/Resolved]

NARRATIVE: CASE EVENT DATE: 20250326
